FAERS Safety Report 17297293 (Version 1)
Quarter: 2020Q1

REPORT INFORMATION
  Report Type: Spontaneous
  Country: US (occurrence: US)
  Receive Date: 20200122
  Receipt Date: 20200122
  Transmission Date: 20200409
  Serious: No
  Sender: FDA-Public Use
  Company Number: US-AUROBINDO-AUR-APL-2019-002635

PATIENT
  Sex: Male

DRUGS (3)
  1. DEXAMETHASONE INJECTION [Suspect]
     Active Substance: DEXAMETHASONE
     Indication: CHEST PAIN
  2. DEXAMETHASONE INJECTION [Suspect]
     Active Substance: DEXAMETHASONE
     Indication: NASAL DISCOMFORT
     Dosage: UNK
     Route: 065
  3. DEXAMETHASONE INJECTION [Suspect]
     Active Substance: DEXAMETHASONE
     Indication: THROAT IRRITATION

REACTIONS (1)
  - Blood glucose increased [Not Recovered/Not Resolved]
